FAERS Safety Report 9668385 (Version 7)
Quarter: 2014Q2

REPORT INFORMATION
  Report Type: Report from Study
  Country: FR (occurrence: FR)
  Receive Date: 20131104
  Receipt Date: 20140604
  Transmission Date: 20141212
  Serious: Yes (Other)
  Sender: FDA-Public Use
  Company Number: PHHY2013FR123665

PATIENT
  Age: 78 Year
  Sex: Female
  Weight: 60 kg

DRUGS (7)
  1. ACLASTA/ZOLEDRONATE [Suspect]
     Indication: OSTEOPOROSIS
     Dosage: 5 MG, UNK
     Route: 042
     Dates: start: 201202
  2. ACLASTA/ZOLEDRONATE [Suspect]
     Dosage: 5 MG, UNK
     Route: 042
     Dates: start: 201302
  3. ARCOXIA [Concomitant]
     Dosage: UNK UKN, UNK
     Dates: start: 2011
  4. TILCOTIL [Concomitant]
     Dosage: UNK UKN, UNK
     Dates: start: 2012
  5. CYMBALTA [Concomitant]
     Indication: DEPRESSION
     Dosage: 60 MG, QD
     Dates: start: 201205
  6. CYMBALTA [Concomitant]
     Dosage: 60 MG, QD
     Dates: start: 201211, end: 201312
  7. TAHOR [Concomitant]
     Indication: HYPERLIPIDAEMIA
     Dosage: 10 MG, QD
     Dates: start: 2010

REACTIONS (4)
  - Radius fracture [Recovered/Resolved]
  - Fall [Unknown]
  - Depression [Not Recovered/Not Resolved]
  - Osteoarthritis [Not Recovered/Not Resolved]
